FAERS Safety Report 7125081-6 (Version None)
Quarter: 2010Q4

REPORT INFORMATION
  Report Type: 
  Country: None (occurrence: None)
  Receive Date: 20101129
  Receipt Date: 20101014
  Transmission Date: 20110411
  Serious: Yes (Death, Hospitalization)
  Sender: FDA-Public Use
  Company Number: US-AMGEN-KDL438412

PATIENT

DRUGS (6)
  1. NPLATE [Suspect]
     Indication: IDIOPATHIC THROMBOCYTOPENIC PURPURA
     Dosage: 1 A?G/KG, UNK
     Route: 058
     Dates: start: 20091203, end: 20100819
  2. LOPRESSOR [Concomitant]
     Dosage: 50 MG, BID
     Route: 048
  3. TAPAZOLE [Concomitant]
     Dosage: 10 G, BID
     Route: 048
     Dates: start: 20100801
  4. ASA [Concomitant]
     Dosage: 30 MG, QD
     Route: 048
  5. VASOTEC [Concomitant]
  6. ZOCOR [Concomitant]

REACTIONS (8)
  - ASTHENIA [None]
  - ATRIAL FIBRILLATION [None]
  - DIARRHOEA [None]
  - DIZZINESS [None]
  - MALAISE [None]
  - NAUSEA [None]
  - RENAL FAILURE [None]
  - VOMITING [None]
